FAERS Safety Report 4384065-1 (Version None)
Quarter: 2004Q2

REPORT INFORMATION
  Report Type: 
  Country: None (occurrence: None)
  Receive Date: 20040607
  Receipt Date: 20040519
  Transmission Date: 20050107
  Serious: Yes (Death)
  Sender: FDA-Public Use
  Company Number: 237135

PATIENT
  Sex: Male

DRUGS (1)
  1. NOVOSEVEN [Suspect]
     Indication: LIVER TRANSPLANT
     Dosage: 80 UG/KG, SINGLE, INTRAVENOUS
     Route: 042

REACTIONS (1)
  - THROMBOSIS [None]
